FAERS Safety Report 17491183 (Version 1)
Quarter: 2020Q1

REPORT INFORMATION
  Report Type: Spontaneous
  Country: US (occurrence: US)
  Receive Date: 20200303
  Receipt Date: 20200303
  Transmission Date: 20200409
  Serious: No
  Sender: FDA-Public Use
  Company Number: US-SA-2020SA050352

PATIENT
  Age: 23 Year
  Sex: Female

DRUGS (3)
  1. LEXAPRO [Concomitant]
     Active Substance: ESCITALOPRAM OXALATE
     Indication: ANXIETY
     Dosage: FOR ABOUT 4 YEARS
  2. RIFADIN [Suspect]
     Active Substance: RIFAMPIN
     Indication: LATENT TUBERCULOSIS
     Dosage: 600 MG
     Dates: start: 202002
  3. HUMIRA [Concomitant]
     Active Substance: ADALIMUMAB
     Indication: PSORIATIC ARTHROPATHY

REACTIONS (4)
  - Headache [Unknown]
  - Chromaturia [Unknown]
  - Nausea [Unknown]
  - Anxiety [Unknown]

NARRATIVE: CASE EVENT DATE: 202002
